FAERS Safety Report 6674796-2 (Version None)
Quarter: 2010Q1

REPORT INFORMATION
  Report Type: 
  Country: None (occurrence: None)
  Receive Date: 20100331
  Receipt Date: 20090226
  Transmission Date: 20100710
  Serious: Yes (Other)
  Sender: FDA-Public Use
  Company Number: 2009154610

PATIENT
  Age: 63 Year
  Sex: Male

DRUGS (3)
  1. CADUET [Suspect]
     Indication: HYPERLIPIDAEMIA
  2. CADUET [Suspect]
     Indication: HYPERTENSION
  3. ASPIRIN [Concomitant]

REACTIONS (2)
  - GINGIVAL HYPERPLASIA [None]
  - GINGIVAL SWELLING [None]
